FAERS Safety Report 7961838-7 (Version None)
Quarter: 2011Q4

REPORT INFORMATION
  Report Type: 
  Country: None (occurrence: None)
  Receive Date: 20111207
  Receipt Date: 20111207
  Transmission Date: 20120403
  Serious: Yes (Other)
  Sender: FDA-Public Use
  Company Number: None

PATIENT
  Age: 18 Year
  Sex: Male
  Weight: 64.41 kg

DRUGS (1)
  1. SERTRALINE HYDROCHLORIDE [Suspect]
     Indication: ANXIETY
     Dosage: 1 AND 1/2 TABLETS
     Route: 048
     Dates: start: 20110930, end: 20111206

REACTIONS (6)
  - ABDOMINAL DISCOMFORT [None]
  - OESOPHAGEAL PAIN [None]
  - OESOPHAGEAL DISCOMFORT [None]
  - ABDOMINAL PAIN UPPER [None]
  - PRODUCT SUBSTITUTION ISSUE [None]
  - NAUSEA [None]
